FAERS Safety Report 20157879 (Version 28)
Quarter: 2022Q4

REPORT INFORMATION
  Report Type: Report from Study
  Country: FR (occurrence: None)
  Receive Date: 20211207
  Receipt Date: 20221021
  Transmission Date: 20230112
  Serious: Yes (Hospitalization, Disabling)
  Sender: FDA-Public Use
  Company Number: FR-Eisai Medical Research-EC-2021-104410

PATIENT
  Age: 20 Year
  Sex: Female
  Weight: 55 kg

DRUGS (10)
  1. LENVATINIB [Suspect]
     Active Substance: LENVATINIB
     Indication: Chordoma
     Route: 048
     Dates: start: 20211019, end: 20211129
  2. LENVATINIB [Suspect]
     Active Substance: LENVATINIB
     Dosage: DOSE REDUCED; FORMULATION: SUSPENSION; ORAL
     Route: 048
     Dates: start: 20211208, end: 20211218
  3. LENVATINIB [Suspect]
     Active Substance: LENVATINIB
     Dosage: DOSE UNKNOWN
     Route: 048
     Dates: start: 20211223, end: 20220129
  4. LENVATINIB [Suspect]
     Active Substance: LENVATINIB
     Dosage: DOSE REDUCED; DOSE UNKNOWN, FORMULATION: SUSPENSION; ROUTES OF ADMINISTRATION: GASTROSTOMY TUBE
     Route: 048
     Dates: start: 20220214, end: 20220622
  5. LENVATINIB [Suspect]
     Active Substance: LENVATINIB
     Dosage: DOSE REDUCED; FORMULATION: SUSPENSION; ROUTES OF ADMINISTRATION: GASTROSTOMY TUBE
     Route: 048
     Dates: start: 20220704
  6. LENVATINIB [Suspect]
     Active Substance: LENVATINIB
     Dosage: FORMULATION: SUSPENSION; ROUTES OF ADMINISTRATION: GASTROSTOMY TUBE
     Route: 048
     Dates: start: 20220914
  7. LAMALINE [Concomitant]
     Dates: start: 20210816, end: 20211203
  8. ACETAMINOPHEN [Concomitant]
     Active Substance: ACETAMINOPHEN
     Dates: start: 20211018
  9. VOGALENE [Concomitant]
     Active Substance: METOPIMAZINE
     Dates: start: 20211018
  10. CEFIXIME [Concomitant]
     Active Substance: CEFIXIME
     Dates: start: 20211018, end: 20211021

REACTIONS (4)
  - Bronchitis [Recovered/Resolved]
  - Weight decreased [Recovered/Resolved]
  - Fatigue [Recovering/Resolving]
  - Pneumonia aspiration [Recovered/Resolved]

NARRATIVE: CASE EVENT DATE: 20211026
